FAERS Safety Report 5718241-X (Version None)
Quarter: 2008Q2

REPORT INFORMATION
  Report Type: 
  Country: None (occurrence: None)
  Receive Date: 20080425
  Receipt Date: 20080414
  Transmission Date: 20081010
  Serious: Yes (Hospitalization)
  Sender: FDA-Public Use
  Company Number: FR-GILEAD-2008-0016088

PATIENT
  Sex: Male
  Weight: 69 kg

DRUGS (5)
  1. VIREAD [Suspect]
     Indication: HIV INFECTION
     Route: 048
     Dates: start: 20020813
  2. ABACAVIR [Concomitant]
     Indication: HIV INFECTION
     Dates: start: 20061005, end: 20070806
  3. RITONAVIR [Concomitant]
     Indication: HIV INFECTION
     Dates: start: 20061005
  4. T20 [Concomitant]
     Indication: HIV INFECTION
     Dates: start: 20061005
  5. TIPRANAVIR [Concomitant]
     Indication: HIV INFECTION
     Dates: start: 20061005, end: 20070806

REACTIONS (2)
  - HAEMOGLOBIN DECREASED [None]
  - PROGRESSIVE MULTIFOCAL LEUKOENCEPHALOPATHY [None]
